FAERS Safety Report 17130445 (Version 2)
Quarter: 2020Q3

REPORT INFORMATION
  Report Type: Report from Study
  Country: US (occurrence: US)
  Receive Date: 20191209
  Receipt Date: 20200826
  Transmission Date: 20201102
  Serious: Yes (Death, Hospitalization)
  Sender: FDA-Public Use
  Company Number: US-ASTRAZENECA-2019SF75238

PATIENT
  Age: 28925 Day
  Sex: Male
  Weight: 58.1 kg

DRUGS (1)
  1. FASENRA [Suspect]
     Active Substance: BENRALIZUMAB
     Indication: ASTHMA
     Dosage: 30 MG, EVERY FOUR WEEKS FOR THE FIRST THREE DOSES AND THEN EVERY EIGHT WEEKS THEREAFTER
     Route: 058
     Dates: start: 201802, end: 20190211

REACTIONS (5)
  - Oropharyngeal pain [Fatal]
  - Hypersensitivity [Fatal]
  - Product dose omission issue [Not Recovered/Not Resolved]
  - Asthma [Fatal]
  - Nasal congestion [Fatal]
